FAERS Safety Report 17851775 (Version 3)
Quarter: 2021Q2

REPORT INFORMATION
  Report Type: Spontaneous
  Country: CA (occurrence: CA)
  Receive Date: 20200602
  Receipt Date: 20210511
  Transmission Date: 20210717
  Serious: Yes (Death, Other)
  Sender: FDA-Public Use
  Company Number: CA-SAMSUNG BIOEPIS-SB-2020-18206

PATIENT
  Age: 46 Year
  Sex: Male
  Weight: 97 kg

DRUGS (13)
  1. QUETIAPINE FUMARATE. [Concomitant]
     Active Substance: QUETIAPINE FUMARATE
     Dosage: UNKNOWN
     Route: 048
  2. INFLIXIMAB [Suspect]
     Active Substance: INFLIXIMAB
     Indication: COLITIS ULCERATIVE
     Route: 042
  3. CLONAZEPAM. [Concomitant]
     Active Substance: CLONAZEPAM
     Route: 065
  4. DESOXIMETASONE. [Concomitant]
     Active Substance: DESOXIMETASONE
     Indication: GASTROINTESTINAL INFLAMMATION
     Dosage: UNKNOWN
     Route: 065
  5. QUETIAPINE FUMARATE. [Concomitant]
     Active Substance: QUETIAPINE FUMARATE
     Indication: PRODUCT USED FOR UNKNOWN INDICATION
     Route: 048
  6. SERTRALINE HYDROCHLORIDE. [Concomitant]
     Active Substance: SERTRALINE HYDROCHLORIDE
     Indication: PRODUCT USED FOR UNKNOWN INDICATION
     Dosage: UNKNOWN
     Route: 065
  7. QUETIAPINE FUMARATE. [Concomitant]
     Active Substance: QUETIAPINE FUMARATE
     Route: 048
  8. QUETIAPINE FUMARATE. [Concomitant]
     Active Substance: QUETIAPINE FUMARATE
     Route: 048
  9. BENTYLOL [Concomitant]
     Active Substance: DICYCLOMINE HYDROCHLORIDE
     Indication: PRODUCT USED FOR UNKNOWN INDICATION
     Dosage: UNKNOWN
     Route: 065
  10. CLONAZEPAM. [Concomitant]
     Active Substance: CLONAZEPAM
     Indication: PRODUCT USED FOR UNKNOWN INDICATION
     Dosage: UNKNOWN
     Route: 065
  11. DILAUDID [Concomitant]
     Active Substance: HYDROMORPHONE HYDROCHLORIDE
     Indication: PRODUCT USED FOR UNKNOWN INDICATION
     Dosage: UNKNOWN
     Route: 058
  12. PAROXETINE. [Concomitant]
     Active Substance: PAROXETINE
     Indication: PRODUCT USED FOR UNKNOWN INDICATION
     Route: 048
  13. TYLENOL 8 HR ARTHRITIS PAIN [Concomitant]
     Active Substance: ACETAMINOPHEN
     Indication: PRODUCT USED FOR UNKNOWN INDICATION
     Dosage: UNKNOWN (EXTENDED RELEASE)
     Route: 065

REACTIONS (30)
  - Amnesia [Fatal]
  - Bronchitis [Fatal]
  - Fatigue [Fatal]
  - Ocular hyperaemia [Not Recovered/Not Resolved]
  - Arthralgia [Fatal]
  - Burns first degree [Fatal]
  - Pharyngitis [Fatal]
  - Pruritus [Fatal]
  - Somnolence [Fatal]
  - Incorrect dose administered [Fatal]
  - Eye pruritus [Not Recovered/Not Resolved]
  - Depressed mood [Fatal]
  - Drug ineffective [Fatal]
  - Inappropriate schedule of product administration [Fatal]
  - Distractibility [Fatal]
  - Abdominal hernia [Fatal]
  - Aphonia [Fatal]
  - Condition aggravated [Fatal]
  - Oropharyngeal pain [Fatal]
  - Wound complication [Fatal]
  - Road traffic accident [Fatal]
  - Off label use [Fatal]
  - Blood pressure fluctuation [Fatal]
  - Heart rate decreased [Fatal]
  - Heart rate irregular [Not Recovered/Not Resolved]
  - Erythema [Fatal]
  - Wound [Fatal]
  - Wound infection [Fatal]
  - Dyschezia [Fatal]
  - Intentional product use issue [Fatal]
